FAERS Safety Report 8232409-2 (Version None)
Quarter: 2012Q1

REPORT INFORMATION
  Report Type: 
  Country: None (occurrence: None)
  Receive Date: 20120323
  Receipt Date: 20120316
  Transmission Date: 20120608
  Serious: Yes (Life-Threatening)
  Sender: FDA-Public Use
  Company Number: US-SHIONOGI, INC-2011000099

PATIENT

DRUGS (3)
  1. TWINJECT 0.3 [Suspect]
     Dosage: 0.3 MG, AS NEEDED
     Dates: start: 20110604, end: 20110604
  2. BENICAR [Concomitant]
     Indication: HYPERTENSION
     Dosage: 40 MG, QD
     Route: 048
  3. HORMONE REPLACEMENT THERAPY [Concomitant]

REACTIONS (3)
  - PRODUCT QUALITY ISSUE [None]
  - INJECTION SITE HAEMATOMA [None]
  - DEVICE MALFUNCTION [None]
